FAERS Safety Report 14082561 (Version 1)
Quarter: 2017Q4

REPORT INFORMATION
  Report Type: Spontaneous
  Country: US (occurrence: US)
  Receive Date: 20171013
  Receipt Date: 20171013
  Transmission Date: 20180321
  Serious: No
  Sender: FDA-Public Use
  Company Number: US-GLAXOSMITHKLINE-US2017155780

PATIENT
  Sex: Female

DRUGS (1)
  1. VOLTAREN [Suspect]
     Active Substance: DICLOFENAC SODIUM
     Indication: MUSCULOSKELETAL DISCOMFORT
     Dosage: UNK UNK, BID
     Route: 061
     Dates: start: 20170925

REACTIONS (5)
  - Drug administered at inappropriate site [Unknown]
  - Hyperhidrosis [Recovering/Resolving]
  - Inappropriate schedule of drug administration [Unknown]
  - Product use in unapproved indication [Unknown]
  - Feeling hot [Recovering/Resolving]

NARRATIVE: CASE EVENT DATE: 20171006
